FAERS Safety Report 7732540-1 (Version None)
Quarter: 2011Q3

REPORT INFORMATION
  Report Type: 
  Country: None (occurrence: None)
  Receive Date: 20110906
  Receipt Date: 20110824
  Transmission Date: 20111222
  Serious: Yes (Other)
  Sender: FDA-Public Use
  Company Number: US-RB-029424-11

PATIENT
  Age: 50 Year
  Sex: Female

DRUGS (3)
  1. SUBOXONE [Suspect]
     Indication: DRUG DEPENDENCE
     Route: 060
     Dates: start: 20100101, end: 20110601
  2. SUBOXONE [Suspect]
     Indication: DRUG DEPENDENCE
     Dosage: SUBLINGUAL FILM; DOSING INFORMATION UNKNOWN
     Route: 065
  3. LORAZEPAM [Suspect]
     Indication: ANXIETY
     Dosage: DOSING INFORMATION UNKNOWN
     Route: 048
     Dates: start: 20110101, end: 20110101

REACTIONS (2)
  - SYNCOPE [None]
  - DRUG WITHDRAWAL SYNDROME [None]
